FAERS Safety Report 4366749-4 (Version None)
Quarter: 2004Q2

REPORT INFORMATION
  Report Type: 
  Country: None (occurrence: None)
  Receive Date: 20040526
  Receipt Date: 20040526
  Transmission Date: 20050107
  Serious: Yes (Other)
  Sender: FDA-Public Use
  Company Number: None

PATIENT
  Sex: Male
  Weight: 78.7 kg

DRUGS (2)
  1. ACTIVASE [Suspect]
     Indication: SARCOMA
     Dosage: 45 MG IV QD X 5 DAYS
     Route: 042
     Dates: start: 20040510, end: 20040514
  2. CAPTOPRIL [Suspect]
     Dosage: 50 MG PO QD (DIVIDED DOSES)

REACTIONS (2)
  - MALIGNANT NEOPLASM PROGRESSION [None]
  - PAIN EXACERBATED [None]
